FAERS Safety Report 9204622 (Version 2)
Quarter: 2013Q2

REPORT INFORMATION
  Report Type: Spontaneous
  Country: US (occurrence: US)
  Receive Date: 20130402
  Receipt Date: 20130402
  Transmission Date: 20140414
  Serious: Yes (Other)
  Sender: FDA-Public Use
  Company Number: US-PFIZER INC-HQWYE394017MAR06

PATIENT
  Age: 15 Year
  Sex: Female

DRUGS (1)
  1. ROBITUSSIN [Suspect]
     Dosage: 12 TO 15 CAPSULES
     Route: 048
     Dates: start: 20060223, end: 20060223

REACTIONS (5)
  - Intentional overdose [Recovered/Resolved]
  - Drug abuse [Recovered/Resolved]
  - Vomiting [Recovered/Resolved]
  - Nausea [Recovered/Resolved]
  - Disorientation [Recovered/Resolved]
